FAERS Safety Report 7664362-4 (Version None)
Quarter: 2011Q3

REPORT INFORMATION
  Report Type: 
  Country: None (occurrence: None)
  Receive Date: 20110806
  Receipt Date: 20110120
  Transmission Date: 20111222
  Serious: No
  Sender: FDA-Public Use
  Company Number: US-ABBOTT-11P-163-0699387-00

PATIENT
  Sex: Male

DRUGS (2)
  1. NIASPAN [Suspect]
     Dates: start: 20101001
  2. NIASPAN [Suspect]
     Indication: PRODUCT USED FOR UNKNOWN INDICATION
     Dosage: AT HOUR OF SLEEP

REACTIONS (4)
  - FLUSHING [None]
  - PRURITUS [None]
  - ERYTHEMA [None]
  - SKIN BURNING SENSATION [None]
